FAERS Safety Report 21850785 (Version 2)
Quarter: 2023Q1

REPORT INFORMATION
  Report Type: Spontaneous
  Country: FR (occurrence: FR)
  Receive Date: 20230111
  Receipt Date: 20230301
  Transmission Date: 20230418
  Serious: Yes (Hospitalization, Other)
  Sender: FDA-Public Use
  Company Number: FR-TAKEDA-2022TUS101057

PATIENT
  Age: 11 Year
  Sex: Female
  Weight: 26 kg

DRUGS (3)
  1. BERINERT [Suspect]
     Active Substance: HUMAN C1-ESTERASE INHIBITOR
     Indication: Prophylaxis
     Route: 065
  2. BERINERT [Suspect]
     Active Substance: HUMAN C1-ESTERASE INHIBITOR
     Indication: Prophylaxis
     Route: 065
  3. ICATIBANT [Concomitant]
     Active Substance: ICATIBANT ACETATE
     Indication: Product used for unknown indication
     Route: 065

REACTIONS (7)
  - Gastrointestinal disorder [Unknown]
  - Hereditary angioedema [Unknown]
  - Ileus [Unknown]
  - Malaise [Unknown]
  - Poor venous access [Unknown]
  - No adverse event [Unknown]
  - Off label use [Unknown]
